FAERS Safety Report 8344559-0 (Version None)
Quarter: 2012Q2

REPORT INFORMATION
  Report Type: 
  Country: None (occurrence: None)
  Receive Date: 20120508
  Receipt Date: 20120502
  Transmission Date: 20120825
  Serious: Yes (Hospitalization)
  Sender: FDA-Public Use
  Company Number: FR-ROCHE-1065287

PATIENT
  Age: 60 Year
  Sex: Female

DRUGS (9)
  1. TAXOTERE [Suspect]
     Indication: BREAST CANCER
     Dates: start: 20120222
  2. HERCEPTIN [Suspect]
     Indication: BREAST CANCER
     Dates: start: 20120222
  3. TAXOTERE [Suspect]
     Dates: start: 20120314
  4. CARBOPLATIN [Suspect]
     Dates: start: 20120416
  5. TAXOTERE [Suspect]
     Dates: start: 20120416
  6. HERCEPTIN [Suspect]
     Dates: start: 20120416
  7. CARBOPLATIN [Suspect]
     Indication: BREAST CANCER
     Dates: start: 20120222
  8. HERCEPTIN [Suspect]
     Dates: start: 20120314
  9. CARBOPLATIN [Suspect]
     Dates: start: 20120314

REACTIONS (1)
  - AGRANULOCYTOSIS [None]
